FAERS Safety Report 7817656-3 (Version None)
Quarter: 2011Q4

REPORT INFORMATION
  Report Type: 
  Country: None (occurrence: None)
  Receive Date: 20111017
  Receipt Date: 20111007
  Transmission Date: 20120403
  Serious: Yes (Other)
  Sender: FDA-Public Use
  Company Number: FR-JNJFOC-20110308209

PATIENT
  Sex: Female
  Weight: 75 kg

DRUGS (2)
  1. TRABECTEDIN [Suspect]
     Indication: OVARIAN EPITHELIAL CANCER
     Dosage: COMPLETED TREATEMENT WITH 6 TRABECTEDIN INFUSIONS
     Route: 042
     Dates: end: 20110228
  2. DOXORUBICIN HYDROCHLORIDE [Suspect]
     Indication: PRODUCT USED FOR UNKNOWN INDICATION
     Route: 065

REACTIONS (3)
  - CARBOHYDRATE ANTIGEN 125 INCREASED [None]
  - HEPATOTOXICITY [None]
  - HAEMATOTOXICITY [None]
